APPROVED DRUG PRODUCT: LEUCOVORIN CALCIUM
Active Ingredient: LEUCOVORIN CALCIUM
Strength: EQ 50MG BASE/VIAL
Dosage Form/Route: INJECTABLE;INJECTION
Application: A081278 | Product #001
Applicant: TEVA PARENTERAL MEDICINES INC
Approved: Sep 28, 1993 | RLD: No | RS: No | Type: DISCN